FAERS Safety Report 17065377 (Version 2)
Quarter: 2019Q4

REPORT INFORMATION
  Report Type: Spontaneous
  Country: US (occurrence: US)
  Receive Date: 20191122
  Receipt Date: 20191126
  Transmission Date: 20200122
  Serious: No
  Sender: FDA-Public Use
  Company Number: US-009507513-1911USA009157

PATIENT
  Sex: Female

DRUGS (1)
  1. NEXPLANON [Suspect]
     Active Substance: ETONOGESTREL
     Dosage: 1ROD
     Route: 059
     Dates: start: 201901

REACTIONS (3)
  - Device breakage [Unknown]
  - Device kink [Unknown]
  - No adverse event [Unknown]
